FAERS Safety Report 14815645 (Version 2)
Quarter: 2018Q2

REPORT INFORMATION
  Report Type: Spontaneous
  Country: US (occurrence: US)
  Receive Date: 20180426
  Receipt Date: 20180608
  Transmission Date: 20180711
  Serious: No
  Sender: FDA-Public Use
  Company Number: US-PFIZER INC-2018166239

PATIENT
  Age: 78 Year
  Sex: Female

DRUGS (1)
  1. DISOPYRAMIDE PHOSPHATE. [Suspect]
     Active Substance: DISOPYRAMIDE PHOSPHATE
     Indication: DIASTOLIC DYSFUNCTION
     Dosage: 150 MG, 2X/DAY
     Route: 048
     Dates: start: 201803

REACTIONS (1)
  - Drug ineffective [Unknown]
